FAERS Safety Report 5432253-5 (Version None)
Quarter: 2007Q3

REPORT INFORMATION
  Report Type: 
  Country: None (occurrence: None)
  Receive Date: 20070830
  Receipt Date: 20070607
  Transmission Date: 20080115
  Serious: Yes (Hospitalization)
  Sender: FDA-Public Use
  Company Number: FR-PFIZER INC-2007069458

PATIENT
  Age: 21 Year
  Sex: Female

DRUGS (1)
  1. VIBRAMYCIN [Suspect]
     Indication: ACNE
     Dates: start: 20070105, end: 20070505

REACTIONS (1)
  - PANCREATITIS ACUTE [None]
